FAERS Safety Report 8225254 (Version 3)
Quarter: 2012Q4

REPORT INFORMATION
  Report Type: Report from Study
  Country: JP (occurrence: JP)
  Receive Date: 20111103
  Receipt Date: 20121017
  Transmission Date: 20130627
  Serious: Yes (Hospitalization)
  Sender: FDA-Public Use
  Company Number: JP-ELI_LILLY_AND_COMPANY-JP201110006341

PATIENT
  Age: 65 Year
  Sex: Female
  Weight: 37 kg

DRUGS (2)
  1. TERIPARATIDE [Suspect]
     Dosage: 20 ug, UNK
     Route: 058
     Dates: start: 20110412, end: 20111114
  2. SYMMETREL [Concomitant]
     Dosage: UNK
     Route: 048

REACTIONS (2)
  - Fall [Recovered/Resolved]
  - Lower limb fracture [Recovered/Resolved]
